APPROVED DRUG PRODUCT: LO MINASTRIN FE
Active Ingredient: ETHINYL ESTRADIOL; NORETHINDRONE ACETATE
Strength: 0.01MG,0.01MG,N/A;1MG,N/A,N/A
Dosage Form/Route: TABLET, CHEWABLE, TABLET;ORAL
Application: N204654 | Product #001
Applicant: ALLERGAN PHARMACEUTICALS INTERNATIONAL LTD
Approved: Jul 24, 2013 | RLD: Yes | RS: No | Type: DISCN

PATENTS:
Patent 7704984 | Expires: Feb 2, 2029